FAERS Safety Report 13665360 (Version 2)
Quarter: 2017Q2

REPORT INFORMATION
  Report Type: Spontaneous
  Country: DK (occurrence: DK)
  Receive Date: 20170619
  Receipt Date: 20170629
  Transmission Date: 20170830
  Serious: Yes (Other)
  Sender: FDA-Public Use
  Company Number: DK-TEVA-777378ACC

PATIENT
  Sex: Female

DRUGS (1)
  1. TRAMADOL ^ACTAVIS^ [Suspect]
     Active Substance: TRAMADOL
     Indication: PRODUCT USED FOR UNKNOWN INDICATION
     Route: 048

REACTIONS (5)
  - Skin wound [Unknown]
  - Subcutaneous abscess [Unknown]
  - Urticaria [Unknown]
  - Pruritus [Unknown]
  - Flatulence [Unknown]
